FAERS Safety Report 4417725-4 (Version None)
Quarter: 2004Q3

REPORT INFORMATION
  Report Type: 
  Country: None (occurrence: None)
  Receive Date: 20040803
  Receipt Date: 20040719
  Transmission Date: 20050211
  Serious: Yes (Hospitalization)
  Sender: FDA-Public Use
  Company Number: 200406587

PATIENT
  Age: 85 Year
  Sex: Female

DRUGS (4)
  1. BOTOX PURIFIED NEUROTOXIN COMPLEX [Suspect]
     Indication: FACIAL SPASM
     Dates: start: 20030117
  2. TAMOXIFEN CITRATE [Concomitant]
  3. CAPTOPRIL [Concomitant]
  4. ARICEPT [Concomitant]

REACTIONS (6)
  - ASTHENIA [None]
  - COUGH [None]
  - DYSPHAGIA [None]
  - PRODUCTIVE COUGH [None]
  - RETCHING [None]
  - URINARY TRACT INFECTION [None]
